FAERS Safety Report 5500636-0 (Version None)
Quarter: 2007Q4

REPORT INFORMATION
  Report Type: 
  Country: None (occurrence: None)
  Receive Date: 20071025
  Receipt Date: 20071012
  Transmission Date: 20080405
  Serious: Yes (Death, Other)
  Sender: FDA-Public Use
  Company Number: 2007US002584

PATIENT
  Sex: Male

DRUGS (3)
  1. PROGRAF [Suspect]
     Indication: HEART TRANSPLANT
  2. AZATHIOPRINE [Concomitant]
  3. AMLODIPINE [Concomitant]

REACTIONS (15)
  - ASCITES [None]
  - CARDIAC MURMUR [None]
  - DIALYSIS [None]
  - DRUG TOXICITY [None]
  - HEPATOBLASTOMA [None]
  - INFERIOR VENA CAVAL OCCLUSION [None]
  - INTRACARDIAC MASS [None]
  - MULTI-ORGAN FAILURE [None]
  - PLEURAL EFFUSION [None]
  - PULMONARY OEDEMA [None]
  - RENAL FAILURE [None]
  - SLEEP APNOEA SYNDROME [None]
  - THROMBOSIS [None]
  - UNEVALUABLE EVENT [None]
  - VENTRICULAR TACHYCARDIA [None]
